FAERS Safety Report 5569400-0 (Version None)
Quarter: 2007Q4

REPORT INFORMATION
  Report Type: 
  Country: None (occurrence: None)
  Receive Date: 20071220
  Receipt Date: 20071214
  Transmission Date: 20080405
  Serious: Yes (Other)
  Sender: FDA-Public Use
  Company Number: US-WYE-H01732907

PATIENT
  Sex: Female

DRUGS (3)
  1. EFFEXOR [Suspect]
     Dosage: UNKNOWN
  2. PROZAC [Suspect]
     Dosage: UNKNOWN
  3. CHANTIX [Suspect]
     Dosage: UNKNOWN

REACTIONS (2)
  - FEELING ABNORMAL [None]
  - MANIA [None]
